FAERS Safety Report 7322485-3 (Version None)
Quarter: 2011Q1

REPORT INFORMATION
  Report Type: 
  Country: None (occurrence: None)
  Receive Date: 20110301
  Receipt Date: 20101125
  Transmission Date: 20110831
  Serious: Yes (Other)
  Sender: FDA-Public Use
  Company Number: FI-BAYER-2010-002358

PATIENT
  Sex: Female

DRUGS (1)
  1. MIRENA [Suspect]
     Indication: CONTRACEPTION
     Dosage: 20 ?G/D, CONT
     Route: 015
     Dates: start: 20100930, end: 20101123

REACTIONS (4)
  - SWELLING [None]
  - METAMORPHOPSIA [None]
  - BREAST TENDERNESS [None]
  - VISUAL FIELD DEFECT [None]
